FAERS Safety Report 20520282 (Version 11)
Quarter: 2025Q1

REPORT INFORMATION
  Report Type: Report from Study
  Country: ES (occurrence: ES)
  Receive Date: 20220225
  Receipt Date: 20250327
  Transmission Date: 20250409
  Serious: Yes (Death, Hospitalization, Other)
  Sender: TAKEDA
  Company Number: ES-TAKEDA-2022TUS011714

PATIENT
  Age: 61 Year
  Sex: Female

DRUGS (43)
  1. TEDUGLUTIDE [Suspect]
     Active Substance: TEDUGLUTIDE
     Indication: Short-bowel syndrome
     Dosage: 3.1 MILLIGRAM, QD
     Dates: start: 20091223, end: 20100811
  2. TEDUGLUTIDE [Suspect]
     Active Substance: TEDUGLUTIDE
  3. TEDUGLUTIDE [Suspect]
     Active Substance: TEDUGLUTIDE
  4. TEDUGLUTIDE [Suspect]
     Active Substance: TEDUGLUTIDE
  5. FERROUS GLYCINE SULFATE [Concomitant]
     Active Substance: FERROUS GLYCINE SULFATE
     Indication: Iron deficiency anaemia
     Dosage: 1 DOSAGE FORM, QD
     Dates: start: 20210618
  6. FERINJECT [Concomitant]
     Active Substance: FERRIC CARBOXYMALTOSE
     Indication: Iron deficiency anaemia
     Dosage: 1 GRAM, SINGLE
     Dates: start: 20210709, end: 20210709
  7. RIFAXIMIN [Concomitant]
     Active Substance: RIFAXIMIN
     Indication: Overgrowth bacterial
     Dosage: 1 DOSAGE FORM, TID
     Dates: start: 20201123, end: 20201129
  8. LEVOTHYROXINE SODIUM [Concomitant]
     Active Substance: LEVOTHYROXINE SODIUM
     Indication: Hypothyroidism
     Dosage: 175 MICROGRAM, QD
     Dates: start: 20201223, end: 20230313
  9. LEVOTHYROXINE SODIUM [Concomitant]
     Active Substance: LEVOTHYROXINE SODIUM
     Dosage: 250 MICROGRAM, QD
     Dates: start: 20230313
  10. CALCIFEDIOL [Concomitant]
     Active Substance: CALCIFEDIOL
     Indication: Osteoporosis
     Dosage: UNK UNK, 1/WEEK
     Dates: start: 20190327
  11. CALCIFEDIOL [Concomitant]
     Active Substance: CALCIFEDIOL
     Indication: Short-bowel syndrome
  12. CALCIUM CARBONATE\CHOLECALCIFEROL [Concomitant]
     Active Substance: CALCIUM CARBONATE\CHOLECALCIFEROL
     Indication: Short-bowel syndrome
     Dosage: UNK UNK, BID
     Dates: start: 20130326
  13. CALCIUM CARBONATE\CHOLECALCIFEROL [Concomitant]
     Active Substance: CALCIUM CARBONATE\CHOLECALCIFEROL
     Indication: Osteoporosis
  14. Magnogene [Concomitant]
     Indication: Short-bowel syndrome
     Dosage: UNK UNK, QD
     Dates: start: 20130326
  15. Magnogene [Concomitant]
     Indication: Malabsorption
  16. FOLIC ACID [Concomitant]
     Active Substance: FOLIC ACID
     Indication: Short-bowel syndrome
     Dosage: 5 MILLIGRAM, QD
     Dates: start: 19890221
  17. FOLIC ACID [Concomitant]
     Active Substance: FOLIC ACID
     Indication: Malabsorption
  18. ZINC SULFATE [Concomitant]
     Active Substance: ZINC SULFATE
     Indication: Short-bowel syndrome
     Dosage: 50 MILLIGRAM, QOD
  19. OMEPRAZOLE [Concomitant]
     Active Substance: OMEPRAZOLE
     Indication: Hyperchlorhydria
     Dosage: 20 MILLIGRAM, QD
     Dates: start: 20220121
  20. OMEPRAZOLE [Concomitant]
     Active Substance: OMEPRAZOLE
     Indication: Gastric ulcer
  21. SPIRONOLACTONE [Concomitant]
     Active Substance: SPIRONOLACTONE
     Indication: Diuretic therapy
     Dosage: 100 MILLIGRAM, QD
     Dates: start: 20220121
  22. SPIRONOLACTONE [Concomitant]
     Active Substance: SPIRONOLACTONE
     Indication: Oedema
     Dosage: 100 MILLIGRAM, QD
     Dates: start: 20220221
  23. FUROSEMIDE [Concomitant]
     Active Substance: FUROSEMIDE
     Indication: Diuretic therapy
     Dosage: 40 MILLIGRAM, QD
     Dates: start: 20220121, end: 20220428
  24. FUROSEMIDE [Concomitant]
     Active Substance: FUROSEMIDE
     Indication: Oedema
     Dosage: 40 MILLIGRAM, QD
     Dates: start: 20220221, end: 20220621
  25. SODIUM SELENITE [Concomitant]
     Active Substance: SODIUM SELENITE
     Indication: Short-bowel syndrome
     Dosage: 100 MICROGRAM, QOD
  26. SODIUM SELENITE [Concomitant]
     Active Substance: SODIUM SELENITE
     Indication: Malabsorption
  27. ZINC SULFATE [Concomitant]
     Active Substance: ZINC SULFATE
     Indication: Short-bowel syndrome
     Dosage: 50 MILLIGRAM, QOD
  28. ZINC SULFATE [Concomitant]
     Active Substance: ZINC SULFATE
     Indication: Malabsorption
  29. Covid-19 vaccine [Concomitant]
     Indication: COVID-19 immunisation
     Dosage: UNK UNK, SINGLE
     Dates: start: 20210506, end: 20210506
  30. Covid-19 vaccine [Concomitant]
     Dosage: UNK UNK, SINGLE
     Dates: start: 20210713, end: 20210713
  31. METAMIZOLE [Concomitant]
     Active Substance: METAMIZOLE
     Indication: Analgesic therapy
     Dosage: 575 MILLIGRAM, TID
     Dates: start: 20220121, end: 20220428
  32. ACETAMINOPHEN [Concomitant]
     Active Substance: ACETAMINOPHEN
     Indication: Analgesic therapy
     Dosage: 1000 MILLIGRAM, TID
     Dates: start: 20220121, end: 20220428
  33. FUROSEMIDE [Concomitant]
     Active Substance: FUROSEMIDE
     Indication: Oedema
     Dosage: 40 MILLIGRAM, QD
     Dates: start: 20220221, end: 20220621
  34. FUROSEMIDE [Concomitant]
     Active Substance: FUROSEMIDE
     Indication: Diuretic therapy
     Dosage: 40 MILLIGRAM, QD
     Dates: start: 20220221, end: 20220621
  35. LOPERAMIDE [Concomitant]
     Active Substance: LOPERAMIDE
     Indication: Faecal management
     Dosage: 2 MILLIGRAM, TID
     Dates: start: 20220121
  36. LOPERAMIDE [Concomitant]
     Active Substance: LOPERAMIDE
     Indication: Diarrhoea
  37. ASTRAZENECA COVID-19 VACCINE [Concomitant]
     Active Substance: AZD-1222
     Indication: COVID-19 immunisation
  38. ASTRAZENECA COVID-19 VACCINE [Concomitant]
     Active Substance: AZD-1222
  39. ATROPINE [Concomitant]
     Active Substance: ATROPINE
     Indication: Premedication
     Dosage: 0.25 MILLIGRAM, SINGLE
     Dates: start: 20221018, end: 20221018
  40. ATROPINE [Concomitant]
     Active Substance: ATROPINE
     Dosage: 0.25 MILLIGRAM, SINGLE
     Dates: start: 20221102, end: 20221102
  41. ATROPINE [Concomitant]
     Active Substance: ATROPINE
     Dosage: 0.25 MILLIGRAM, SINGLE
     Dates: start: 20230110, end: 20230110
  42. SALINE [Concomitant]
     Active Substance: SODIUM CHLORIDE
     Indication: Dehydration
     Dosage: 750 MILLILITER, SINGLE
     Dates: start: 20230321, end: 20230321
  43. SODIUM CHLORIDE [Concomitant]
     Active Substance: SODIUM CHLORIDE
     Indication: Dehydration
     Dosage: 750 MILLILITER, QD
     Dates: start: 20230321, end: 20230321

REACTIONS (4)
  - Colorectal cancer [Fatal]
  - Microcytic anaemia [Recovered/Resolved]
  - Iron deficiency anaemia [Not Recovered/Not Resolved]
  - Renal colic [Recovered/Resolved]

NARRATIVE: CASE EVENT DATE: 20210615
